FAERS Safety Report 20851043 (Version 2)
Quarter: 2022Q2

REPORT INFORMATION
  Report Type: Spontaneous
  Country: US (occurrence: US)
  Receive Date: 20220519
  Receipt Date: 20220613
  Transmission Date: 20220721
  Serious: Yes (Death, Hospitalization, Other)
  Sender: FDA-Public Use
  Company Number: US-PFIZER INC-202200728775

PATIENT
  Age: 75 Year
  Sex: Male
  Weight: 126.5 kg

DRUGS (1)
  1. PRISTIQ EXTENDED-RELEASE [Suspect]
     Active Substance: DESVENLAFAXINE SUCCINATE
     Indication: Depression
     Dosage: UNK, 1X/DAY
     Route: 048
     Dates: end: 202205

REACTIONS (9)
  - Acute respiratory failure [Fatal]
  - Septic shock [Fatal]
  - Chronic obstructive pulmonary disease [Fatal]
  - Lactic acidosis [Fatal]
  - Chronic myeloid leukaemia [Fatal]
  - Chronic kidney disease [Fatal]
  - Metabolic encephalopathy [Fatal]
  - Diabetes mellitus [Fatal]
  - Atrial fibrillation [Fatal]
